FAERS Safety Report 4948851-9 (Version None)
Quarter: 2006Q1

REPORT INFORMATION
  Report Type: 
  Country: None (occurrence: None)
  Receive Date: 20060321
  Receipt Date: 20060127
  Transmission Date: 20060701
  Serious: No
  Sender: FDA-Public Use
  Company Number: PHHO2006MX01763

PATIENT
  Age: 34 Year
  Sex: Male

DRUGS (2)
  1. ZELMAC / HTF 919A [Suspect]
     Indication: IRRITABLE BOWEL SYNDROME
     Dosage: 6 MG, QD
     Route: 048
     Dates: start: 20051001, end: 20051212
  2. PLANTABEN [Concomitant]

REACTIONS (2)
  - DIVERTICULITIS [None]
  - SURGERY [None]
